FAERS Safety Report 8261956-2 (Version None)
Quarter: 2012Q2

REPORT INFORMATION
  Report Type: 
  Country: None (occurrence: None)
  Receive Date: 20120405
  Receipt Date: 20120326
  Transmission Date: 20120825
  Serious: Yes (Death)
  Sender: FDA-Public Use
  Company Number: JP-PFIZER INC-2012083000

PATIENT
  Age: 67 Year
  Sex: Male

DRUGS (2)
  1. IRINOTECAN HCL [Suspect]
     Indication: GASTRIC CANCER
     Dosage: 150 MG/M2, ONCE A DAY
     Route: 041
     Dates: start: 20120223, end: 20120223
  2. IRINOTECAN HCL [Suspect]
     Dosage: 150 MG/M2, ONCE A DAY
     Route: 041
     Dates: start: 20120308, end: 20120308

REACTIONS (3)
  - ACIDOSIS [None]
  - BLOOD CREATININE INCREASED [None]
  - HYPERKALAEMIA [None]
